FAERS Safety Report 9325382 (Version 1)
Quarter: 2013Q2

REPORT INFORMATION
  Report Type: Spontaneous
  Country: FR (occurrence: FR)
  Receive Date: 20130604
  Receipt Date: 20130604
  Transmission Date: 20140414
  Serious: Yes (Life-Threatening, Hospitalization, Other)
  Sender: FDA-Public Use
  Company Number: FR-AMGEN-FRASP2013038903

PATIENT
  Age: 63 Year
  Sex: Female

DRUGS (8)
  1. LEVOTHYROX [Concomitant]
     Indication: HYPOTHYROIDISM
     Dosage: 12.5 UG, DAILY
  2. METHOTREXATE [Concomitant]
     Indication: PSORIASIS
     Dosage: UNK
     Dates: start: 200106, end: 200203
  3. RAPTIVA [Concomitant]
     Indication: PSORIASIS
     Dosage: UNK
     Dates: start: 200302, end: 200307
  4. RAPTIVA [Concomitant]
     Dosage: UNK
     Dates: start: 200602, end: 200812
  5. NEORAL [Concomitant]
     Indication: PSORIASIS
     Dosage: UNK
     Dates: start: 200203, end: 200209
  6. NEORAL [Concomitant]
     Dosage: UNK
     Dates: start: 2009
  7. ENBREL [Suspect]
     Indication: PSORIASIS
     Dosage: UNK
     Dates: start: 200509, end: 200511
  8. STELARA [Suspect]
     Indication: PSORIASIS
     Dosage: 45 MG DOSE FOLLOWED BY A 45 MG DOSE 4 WEEKS LATER, THEN 45 MG EVERY 12 WEEKS
     Route: 058
     Dates: start: 20090528, end: 201211

REACTIONS (1)
  - Glioblastoma [Not Recovered/Not Resolved]
